FAERS Safety Report 5349537-1 (Version None)
Quarter: 2007Q2

REPORT INFORMATION
  Report Type: 
  Country: None (occurrence: None)
  Receive Date: 20070607
  Receipt Date: 20070525
  Transmission Date: 20071010
  Serious: Yes (Hospitalization)
  Sender: FDA-Public Use
  Company Number: DE-ELI_LILLY_AND_COMPANY-DE200701004904

PATIENT
  Sex: Female

DRUGS (4)
  1. FORTEO [Suspect]
     Indication: OSTEOPOROSIS
     Dosage: UNK, EACH EVENING
     Route: 058
     Dates: start: 20061120, end: 20070301
  2. OSSOFORTIN FORTE [Concomitant]
  3. MARCUMAR [Concomitant]
  4. AGGRENOX [Concomitant]

REACTIONS (7)
  - ABDOMINAL NEOPLASM [None]
  - DIARRHOEA [None]
  - DYSGEUSIA [None]
  - FATIGUE [None]
  - GENERAL PHYSICAL HEALTH DETERIORATION [None]
  - NAUSEA [None]
  - WEIGHT DECREASED [None]
